FAERS Safety Report 8210275-9 (Version None)
Quarter: 2012Q1

REPORT INFORMATION
  Report Type: 
  Country: None (occurrence: None)
  Receive Date: 20120314
  Receipt Date: 20110721
  Transmission Date: 20120608
  Serious: Yes (Other)
  Sender: FDA-Public Use
  Company Number: US-ASTRAZENECA-2011SE43990

PATIENT
  Age: 71 Year
  Sex: Male

DRUGS (2)
  1. PLAVIX [Concomitant]
  2. TOPROL-XL [Suspect]
     Route: 048

REACTIONS (1)
  - ATRIOVENTRICULAR BLOCK [None]
